FAERS Safety Report 13936957 (Version 1)
Quarter: 2017Q3

REPORT INFORMATION
  Report Type: Spontaneous
  Country: PL (occurrence: PL)
  Receive Date: 20170905
  Receipt Date: 20170905
  Transmission Date: 20171127
  Serious: Yes (Hospitalization, Other)
  Sender: FDA-Public Use
  Company Number: PHHY2017PL127565

PATIENT
  Age: 83 Year
  Sex: Female

DRUGS (3)
  1. BISOPROLOL [Suspect]
     Active Substance: BISOPROLOL
     Indication: ATRIAL FIBRILLATION
     Dosage: 2.5 MG, QD
     Route: 065
  2. RIVAROXABAN [Concomitant]
     Active Substance: RIVAROXABAN
     Indication: ATRIAL FIBRILLATION
     Dosage: 15 MG, QD
     Route: 065
  3. DENOSUMAB [Concomitant]
     Active Substance: DENOSUMAB
     Indication: OSTEOPOROSIS
     Route: 065

REACTIONS (11)
  - Hypercholesterolaemia [Unknown]
  - Asthenia [Unknown]
  - Atrial fibrillation [Unknown]
  - Lung disorder [Unknown]
  - Cardiac disorder [Unknown]
  - Proteinuria [Unknown]
  - Oedema peripheral [Unknown]
  - Amyloidosis [Unknown]
  - Vitamin D deficiency [Unknown]
  - Fracture [Unknown]
  - Renal impairment [Unknown]
